FAERS Safety Report 21747453 (Version 1)
Quarter: 2022Q4

REPORT INFORMATION
  Report Type: Spontaneous
  Country: US (occurrence: US)
  Receive Date: 20221219
  Receipt Date: 20221219
  Transmission Date: 20230113
  Serious: Yes (Other)
  Sender: FDA-Public Use
  Company Number: US-MYLANLABS-2022M1140057

PATIENT
  Sex: Female

DRUGS (16)
  1. DOXYCYCLINE [Suspect]
     Active Substance: DOXYCYCLINE
     Indication: Neuralgia
     Dosage: UNK
     Route: 065
  2. DOXYCYCLINE [Suspect]
     Active Substance: DOXYCYCLINE
     Indication: Dry eye
  3. CLONAZEPAM [Suspect]
     Active Substance: CLONAZEPAM
     Indication: Neuralgia
     Dosage: UNK
     Route: 065
  4. CLONAZEPAM [Suspect]
     Active Substance: CLONAZEPAM
     Indication: Dry eye
  5. OMEGA-3 FATTY ACIDS [Suspect]
     Active Substance: OMEGA-3 FATTY ACIDS
     Indication: Neuralgia
     Dosage: UNK
     Route: 065
  6. OMEGA-3 FATTY ACIDS [Suspect]
     Active Substance: OMEGA-3 FATTY ACIDS
     Indication: Dry eye
  7. RESTASIS [Suspect]
     Active Substance: CYCLOSPORINE
     Indication: Neuralgia
     Dosage: UNK
     Route: 065
  8. RESTASIS [Suspect]
     Active Substance: CYCLOSPORINE
     Indication: Dry eye
  9. XIIDRA [Suspect]
     Active Substance: LIFITEGRAST
     Indication: Neuralgia
     Dosage: UNK
     Route: 065
  10. XIIDRA [Suspect]
     Active Substance: LIFITEGRAST
     Indication: Dry eye
  11. BROMSITE [Suspect]
     Active Substance: BROMFENAC SODIUM
     Indication: Neuralgia
     Dosage: UNK
     Route: 065
  12. BROMSITE [Suspect]
     Active Substance: BROMFENAC SODIUM
     Indication: Dry eye
  13. BEPREVE [Suspect]
     Active Substance: BEPOTASTINE BESILATE
     Indication: Neuralgia
     Dosage: UNK
     Route: 065
  14. BEPREVE [Suspect]
     Active Substance: BEPOTASTINE BESILATE
     Indication: Dry eye
  15. LORAZEPAM [Suspect]
     Active Substance: LORAZEPAM
     Indication: Neuralgia
     Dosage: UNK
     Route: 065
  16. LORAZEPAM [Suspect]
     Active Substance: LORAZEPAM
     Indication: Dry eye

REACTIONS (2)
  - Treatment failure [Unknown]
  - Off label use [Unknown]
